FAERS Safety Report 4313982-3 (Version None)
Quarter: 2004Q1

REPORT INFORMATION
  Report Type: 
  Country: None (occurrence: None)
  Receive Date: 20040308
  Receipt Date: 20040308
  Transmission Date: 20041129
  Serious: Yes (Hospitalization)
  Sender: FDA-Public Use
  Company Number: None

PATIENT
  Sex: Male
  Weight: 87.9978 kg

DRUGS (2)
  1. XELODA [Suspect]
     Indication: PANCREATIC CARCINOMA
     Dosage: 2000 MG/M2/DAY
     Dates: start: 20040202, end: 20040227
  2. RADIATION [Suspect]
     Indication: PANCREATIC CARCINOMA
     Dosage: 50.4 GY ONCE 28 FR
     Dates: start: 20040202, end: 20040227

REACTIONS (5)
  - DEHYDRATION [None]
  - DIARRHOEA [None]
  - GASTRIC OUTLET OBSTRUCTION [None]
  - MALIGNANT NEOPLASM PROGRESSION [None]
  - METASTASES TO LIVER [None]
